FAERS Safety Report 5040557-3 (Version None)
Quarter: 2006Q2

REPORT INFORMATION
  Report Type: 
  Country: None (occurrence: None)
  Receive Date: 20060630
  Receipt Date: 20030918
  Transmission Date: 20061013
  Serious: Yes (Hospitalization)
  Sender: FDA-Public Use
  Company Number: ES-ABBOTT-03P-144-0233912-02

PATIENT
  Sex: Female
  Weight: 65 kg

DRUGS (2)
  1. HUMIRA [Suspect]
     Indication: RHEUMATOID ARTHRITIS
     Route: 058
     Dates: start: 20010410, end: 20030909
  2. HUMIRA [Suspect]
     Route: 058
     Dates: start: 20030923

REACTIONS (1)
  - MIGRAINE WITHOUT AURA [None]
